FAERS Safety Report 24538880 (Version 3)
Quarter: 2025Q2

REPORT INFORMATION
  Report Type: Spontaneous
  Country: FR (occurrence: FR)
  Receive Date: 20241023
  Receipt Date: 20250425
  Transmission Date: 20250717
  Serious: Yes (Other)
  Sender: ORPHALAN
  Company Number: FR-ORPHALAN-FR-ORP-24-00152

PATIENT

DRUGS (2)
  1. TRIENTINE TETRAHYDROCHLORIDE [Suspect]
     Active Substance: TRIENTINE TETRAHYDROCHLORIDE
     Indication: Hepato-lenticular degeneration
     Dosage: 4 TABLETS, QD
     Route: 048
  2. TRIENTINE TETRAHYDROCHLORIDE [Suspect]
     Active Substance: TRIENTINE TETRAHYDROCHLORIDE
     Route: 048

REACTIONS (7)
  - Thrombocytopenia [Not Recovered/Not Resolved]
  - Hypotension [Unknown]
  - Chromaturia [Unknown]
  - Urine odour abnormal [Unknown]
  - Hepatic cirrhosis [Unknown]
  - Fatigue [Not Recovered/Not Resolved]
  - Hepatic pain [Recovered/Resolved]
